FAERS Safety Report 4800985-5 (Version None)
Quarter: 2005Q4

REPORT INFORMATION
  Report Type: 
  Country: None (occurrence: None)
  Receive Date: 20051012
  Receipt Date: 20050929
  Transmission Date: 20060501
  Serious: Yes (Disabling)
  Sender: FDA-Public Use
  Company Number: 2005136170

PATIENT
  Age: 53 Year
  Sex: Male

DRUGS (1)
  1. SORTIS (ATORVASTATIN) [Suspect]
     Indication: HYPERLIPIDAEMIA
     Dosage: (DAILY), ORAL
     Route: 048
     Dates: start: 20050301

REACTIONS (4)
  - COGNITIVE DISORDER [None]
  - IRRITABILITY [None]
  - MEMORY IMPAIRMENT [None]
  - PERSONALITY CHANGE [None]
